FAERS Safety Report 20844107 (Version 1)
Quarter: 2022Q2

REPORT INFORMATION
  Report Type: Spontaneous
  Country: US (occurrence: None)
  Receive Date: 20220517
  Receipt Date: 20220517
  Transmission Date: 20220721
  Serious: Yes (Death)
  Sender: FDA-Public Use
  Company Number: None

PATIENT
  Age: 81 Year
  Sex: Female

DRUGS (1)
  1. TACROLIMUS [Suspect]
     Active Substance: TACROLIMUS
     Dosage: OTHER FREQUENCY : OTHER;?
     Route: 048
     Dates: start: 20220505, end: 20220505

REACTIONS (1)
  - Death [None]

NARRATIVE: CASE EVENT DATE: 20220505
